FAERS Safety Report 7162476-9 (Version None)
Quarter: 2010Q4

REPORT INFORMATION
  Report Type: 
  Country: None (occurrence: None)
  Receive Date: 20101215
  Receipt Date: 20091120
  Transmission Date: 20110411
  Serious: Yes (Hospitalization)
  Sender: FDA-Public Use
  Company Number: US-PFIZER INC-2009259339

PATIENT
  Sex: Female

DRUGS (2)
  1. PREGABALIN [Suspect]
     Indication: PARAESTHESIA
     Dosage: 75 MG, UNK
  2. FENTANYL-100 [Concomitant]

REACTIONS (1)
  - WITHDRAWAL SYNDROME [None]
